FAERS Safety Report 11083496 (Version 2)
Quarter: 2016Q3

REPORT INFORMATION
  Report Type: Spontaneous
  Country: US (occurrence: US)
  Receive Date: 20150501
  Receipt Date: 20160922
  Transmission Date: 20161109
  Serious: Yes (Disabling, Other)
  Sender: FDA-Public Use
  Company Number: US-BAYER-2015-153962

PATIENT
  Sex: Male

DRUGS (2)
  1. AVELOX [Suspect]
     Active Substance: MOXIFLOXACIN HYDROCHLORIDE
     Indication: PNEUMONIA
     Dosage: UNK
     Dates: start: 201303
  2. AVELOX [Suspect]
     Active Substance: MOXIFLOXACIN HYDROCHLORIDE
     Indication: PNEUMONIA
     Dosage: 500 MG, UNK
     Dates: start: 20130709

REACTIONS (20)
  - Mydriasis [None]
  - Eye pain [None]
  - Iridocyclitis [None]
  - Pigment dispersion syndrome [None]
  - Eye injury [None]
  - Pain [None]
  - Lacrimation increased [None]
  - Anxiety [None]
  - Ocular discomfort [None]
  - Discomfort [None]
  - Sudden visual loss [None]
  - Mood altered [None]
  - Headache [None]
  - Uveitis [None]
  - Feeling of despair [None]
  - Impaired driving ability [None]
  - Visual impairment [None]
  - Photophobia [None]
  - Activities of daily living impaired [None]
  - Eye irritation [None]
